FAERS Safety Report 24437397 (Version 1)
Quarter: 2024Q4

REPORT INFORMATION
  Report Type: Spontaneous
  Country: DE (occurrence: DE)
  Receive Date: 20241015
  Receipt Date: 20241015
  Transmission Date: 20250114
  Serious: Yes (Hospitalization)
  Sender: B BRAUN
  Company Number: DE-B.Braun Medical Inc.-2163058

PATIENT
  Age: 63 Year
  Sex: Male
  Weight: 65 kg

DRUGS (29)
  1. HEPARIN SODIUM IN DEXTROSE [Suspect]
     Active Substance: HEPARIN SODIUM
     Indication: Thrombosis
  2. FLUVASTATIN SODIUM [Suspect]
     Active Substance: FLUVASTATIN SODIUM
  3. ISMN BASICS [Concomitant]
  4. CARVEDILOL [Concomitant]
     Active Substance: CARVEDILOL
  5. INSULIN NOS [Concomitant]
     Active Substance: INSULIN NOS
  6. MOLSIDOMINE [Concomitant]
     Active Substance: MOLSIDOMINE
  7. AQUAPHOR (XIPAMIDE) [Concomitant]
     Active Substance: XIPAMIDE
  8. PANTOZOL [Suspect]
     Active Substance: PANTOPRAZOLE SODIUM
  9. ASPIRIN DL-LYSINE [Suspect]
     Active Substance: ASPIRIN DL-LYSINE
  10. MORPHINE [Suspect]
     Active Substance: MORPHINE
  11. ALLOPURINOL [Suspect]
     Active Substance: ALLOPURINOL
  12. ACTRAPID [Suspect]
     Active Substance: INSULIN HUMAN
  13. AMOXICILLIN [Suspect]
     Active Substance: AMOXICILLIN
  14. LASIX [Suspect]
     Active Substance: FUROSEMIDE
  15. ACETYLCYSTEINE [Suspect]
     Active Substance: ACETYLCYSTEINE
  16. DIAZEPAM [Suspect]
     Active Substance: DIAZEPAM
  17. URAPIDIL [Suspect]
     Active Substance: URAPIDIL
  18. FUROSEMIDE [Suspect]
     Active Substance: FUROSEMIDE
  19. ACETYLCYSTEINE [Suspect]
     Active Substance: ACETYLCYSTEINE
  20. UNSPECIFIED INGREDIENT [Suspect]
     Active Substance: UNSPECIFIED INGREDIENT
  21. MOLSIDOMINE [Suspect]
     Active Substance: MOLSIDOMINE
  22. METAMIZOLE SODIUM [Suspect]
     Active Substance: METAMIZOLE SODIUM
  23. ISOSORBIDE DINITRATE [Suspect]
     Active Substance: ISOSORBIDE DINITRATE
  24. ACETAMINOPHEN [Suspect]
     Active Substance: ACETAMINOPHEN
  25. NITROGLYCERIN [Suspect]
     Active Substance: NITROGLYCERIN
  26. NITROGLYCERIN [Suspect]
     Active Substance: NITROGLYCERIN
  27. METOCLOPRAMIDE [Suspect]
     Active Substance: METOCLOPRAMIDE
  28. FUROSEMIDE [Suspect]
     Active Substance: FUROSEMIDE
  29. ASPIRIN [Suspect]
     Active Substance: ASPIRIN

REACTIONS (11)
  - Leukocytosis [Unknown]
  - Pyrexia [Unknown]
  - Rash [Unknown]
  - Ocular hyperaemia [Unknown]
  - Pruritus [Unknown]
  - Skin disorder [Unknown]
  - Erythema multiforme [Unknown]
  - Stevens-Johnson syndrome [Unknown]
  - Blood creatinine increased [Unknown]
  - Blood urea increased [Unknown]
  - Oral mucosal eruption [Unknown]
